FAERS Safety Report 13981084 (Version 1)
Quarter: 2017Q3

REPORT INFORMATION
  Report Type: Spontaneous
  Country: US (occurrence: US)
  Receive Date: 20170918
  Receipt Date: 20170918
  Transmission Date: 20171128
  Serious: No
  Sender: FDA-Public Use
  Company Number: US-TEVA-761653ACC

PATIENT
  Sex: Female

DRUGS (3)
  1. BUPROPION EXTENDED RELEASE XL [Suspect]
     Active Substance: BUPROPION
     Indication: DEPRESSION
     Dates: start: 201701
  2. BUPROPION EXTENDED RELEASE XL [Suspect]
     Active Substance: BUPROPION
     Indication: ANXIETY
  3. BUPROPION EXTENDED RELEASE XL [Suspect]
     Active Substance: BUPROPION
     Indication: PANIC ATTACK

REACTIONS (4)
  - Movement disorder [Not Recovered/Not Resolved]
  - Anxiety [Not Recovered/Not Resolved]
  - Panic reaction [Not Recovered/Not Resolved]
  - Drug ineffective [Unknown]

NARRATIVE: CASE EVENT DATE: 201702
